FAERS Safety Report 12633531 (Version 1)
Quarter: 2016Q3

REPORT INFORMATION
  Report Type: Spontaneous
  Country: US (occurrence: None)
  Receive Date: 20160808
  Receipt Date: 20160808
  Transmission Date: 20161109
  Serious: Yes (Hospitalization)
  Sender: FDA-Public Use
  Company Number: None

PATIENT
  Age: 72 Year
  Sex: Male
  Weight: 76.8 kg

DRUGS (1)
  1. AMANTADINE [Suspect]
     Active Substance: AMANTADINE
     Indication: TARDIVE DYSKINESIA
     Route: 048
     Dates: start: 20160311, end: 20160418

REACTIONS (2)
  - Hallucination [None]
  - Ataxia [None]

NARRATIVE: CASE EVENT DATE: 20160418
